FAERS Safety Report 6544443-9 (Version None)
Quarter: 2010Q1

REPORT INFORMATION
  Report Type: 
  Country: None (occurrence: None)
  Receive Date: 20100121
  Receipt Date: 20100108
  Transmission Date: 20100710
  Serious: Yes (Other)
  Sender: FDA-Public Use
  Company Number: GB-RANBAXY-2010RR-30345

PATIENT
  Sex: Female

DRUGS (3)
  1. CLARITHROMYCIN [Suspect]
     Indication: VIRAL INFECTION
     Route: 064
  2. AMOXICILLIN AND CLAVULANATE POTASSIUM [Suspect]
     Indication: VIRAL INFECTION
     Route: 064
  3. OSELTAMIVIR [Suspect]
     Indication: VIRAL INFECTION
     Dosage: UNK
     Route: 064

REACTIONS (2)
  - DRUG EXPOSURE DURING PREGNANCY [None]
  - FOETAL DISTRESS SYNDROME [None]
